FAERS Safety Report 4888082-4 (Version None)
Quarter: 2006Q1

REPORT INFORMATION
  Report Type: 
  Country: None (occurrence: None)
  Receive Date: 20060123
  Receipt Date: 20051005
  Transmission Date: 20060701
  Serious: Yes (Hospitalization, Disabling)
  Sender: FDA-Public Use
  Company Number: US-MERCK-0510USA04627

PATIENT
  Age: 59 Year
  Sex: Female
  Weight: 105 kg

DRUGS (3)
  1. VIOXX [Suspect]
     Indication: ARTHRITIS
     Route: 048
     Dates: start: 19991001, end: 20030701
  2. HYZAAR [Concomitant]
     Route: 048
  3. TRAZODONE HYDROCHLORIDE [Concomitant]
     Route: 065

REACTIONS (11)
  - ARTERIOSCLEROSIS [None]
  - CAROTID ARTERY STENOSIS [None]
  - CEREBROVASCULAR ACCIDENT [None]
  - CHEST PAIN [None]
  - DEEP VEIN THROMBOSIS [None]
  - INTERVERTEBRAL DISC PROTRUSION [None]
  - MENISCUS LESION [None]
  - PERIPHERAL VASCULAR DISORDER [None]
  - SHOULDER PAIN [None]
  - THROMBOPHLEBITIS [None]
  - VERTEBRAL ARTERY OCCLUSION [None]
